FAERS Safety Report 6204079-6 (Version None)
Quarter: 2009Q2

REPORT INFORMATION
  Report Type: 
  Country: None (occurrence: None)
  Receive Date: 20090527
  Receipt Date: 20090521
  Transmission Date: 20091009
  Serious: Yes (Hospitalization)
  Sender: FDA-Public Use
  Company Number: GB-PFIZER INC-2005080669

PATIENT
  Age: 50 Year

DRUGS (9)
  1. SILDENAFIL CITRATE [Suspect]
     Indication: PULMONARY ARTERIAL HYPERTENSION
     Route: 048
     Dates: start: 20050128
  2. WARFARIN SODIUM [Concomitant]
     Route: 048
     Dates: start: 20040508
  3. ADALAT [Concomitant]
     Route: 048
     Dates: start: 19940101
  4. IBUPROFEN [Concomitant]
     Route: 048
     Dates: start: 20030101
  5. BUMETANIDE [Concomitant]
     Route: 048
     Dates: start: 20041110
  6. SPIRONOLACTONE [Concomitant]
     Dosage: UNK
     Route: 048
     Dates: start: 20041110
  7. ALLOPURINOL [Concomitant]
     Route: 048
     Dates: start: 20041110
  8. COLCHICINE [Concomitant]
     Route: 048
     Dates: start: 20041110
  9. LANSOPRAZOLE [Concomitant]
     Route: 048
     Dates: start: 20050216

REACTIONS (2)
  - RIGHT VENTRICULAR FAILURE [None]
  - VIRAL INFECTION [None]
